FAERS Safety Report 15992551 (Version 4)
Quarter: 2022Q1

REPORT INFORMATION
  Report Type: Report from Study
  Country: US (occurrence: US)
  Receive Date: 20190221
  Receipt Date: 20220215
  Transmission Date: 20220423
  Serious: Yes (Other)
  Sender: FDA-Public Use
  Company Number: US-ARIAD PHARMACEUTICALS, INC-2017US008560

PATIENT
  Age: 57 Year
  Sex: Male

DRUGS (4)
  1. PONATINIB [Suspect]
     Active Substance: PONATINIB
     Indication: Chronic myeloid leukaemia
     Dosage: 30 MILLIGRAM, QD
     Route: 048
     Dates: start: 201604
  2. PONATINIB [Suspect]
     Active Substance: PONATINIB
     Dosage: 60 MILLIGRAM, QD
     Route: 048
  3. PONATINIB [Suspect]
     Active Substance: PONATINIB
     Dosage: 30 MILLIGRAM, QD
     Route: 065
     Dates: start: 20190319
  4. PONATINIB [Suspect]
     Active Substance: PONATINIB
     Dosage: 15 MILLIGRAM, QD
     Route: 065

REACTIONS (26)
  - Graft versus host disease [Recovered/Resolved]
  - Stem cell transplant [Unknown]
  - Depression [Unknown]
  - Haematocrit decreased [Unknown]
  - Liver function test increased [Unknown]
  - Nausea [Recovered/Resolved]
  - Diarrhoea [Recovered/Resolved]
  - Rash [Unknown]
  - White blood cell count decreased [Unknown]
  - Platelet count decreased [Unknown]
  - Haemoglobin decreased [Unknown]
  - Neutrophil count decreased [Unknown]
  - Stomatitis [Unknown]
  - Pain [Unknown]
  - Shoulder operation [Unknown]
  - Decreased appetite [Not Recovered/Not Resolved]
  - Road traffic accident [Unknown]
  - Skin injury [Unknown]
  - Contusion [Unknown]
  - Oral lichenoid reaction [Not Recovered/Not Resolved]
  - Hypersomnia [Unknown]
  - Candida infection [Unknown]
  - Skin hyperpigmentation [Unknown]
  - Product dose omission issue [Unknown]
  - Overdose [Unknown]
  - Expired product administered [Unknown]

NARRATIVE: CASE EVENT DATE: 20160701
